FAERS Safety Report 7109911-X (Version None)
Quarter: 2010Q4

REPORT INFORMATION
  Report Type: 
  Country: None (occurrence: None)
  Receive Date: 20101116
  Receipt Date: 20101116
  Transmission Date: 20110411
  Serious: Yes (Other)
  Sender: FDA-Public Use
  Company Number: None

PATIENT
  Age: 48 Year
  Sex: Male
  Weight: 77.1115 kg

DRUGS (1)
  1. GABAPENTIN [Suspect]
     Indication: MYOCLONUS
     Dosage: 200 MG 3 TIMES A DAY PO
     Route: 048
     Dates: start: 20080101, end: 20101111

REACTIONS (1)
  - DRUG DEPENDENCE [None]
